FAERS Safety Report 20093552 (Version 1)
Quarter: 2021Q4

REPORT INFORMATION
  Report Type: Report from Study
  Country: US (occurrence: US)
  Receive Date: 20211121
  Receipt Date: 20211121
  Transmission Date: 20220303
  Serious: Yes (Death, Life-Threatening, Other)
  Sender: FDA-Public Use
  Company Number: US-JNJFOC-20210952989

PATIENT
  Age: 84 Year
  Sex: Female

DRUGS (1)
  1. MACITENTAN [Suspect]
     Active Substance: MACITENTAN
     Indication: Pulmonary arterial hypertension
     Route: 048
     Dates: start: 20210806, end: 202111

REACTIONS (12)
  - Pulmonary artery occlusion [Fatal]
  - Multiple organ dysfunction syndrome [Recovered/Resolved]
  - Memory impairment [Unknown]
  - Renal failure [Not Recovered/Not Resolved]
  - Oedema peripheral [Not Recovered/Not Resolved]
  - Headache [Recovered/Resolved]
  - Nausea [Recovered/Resolved]
  - Functional gastrointestinal disorder [Recovered/Resolved]
  - Dermatitis [Recovering/Resolving]
  - Muscle spasms [Recovered/Resolved]
  - Contusion [Recovering/Resolving]
  - Product dose omission issue [Unknown]

NARRATIVE: CASE EVENT DATE: 20210101
